FAERS Safety Report 4937676-6 (Version None)
Quarter: 2006Q1

REPORT INFORMATION
  Report Type: 
  Country: None (occurrence: None)
  Receive Date: 20060309
  Receipt Date: 20050607
  Transmission Date: 20060701
  Serious: Yes (Hospitalization)
  Sender: FDA-Public Use
  Company Number: US-MERCK-0506USA01061

PATIENT
  Age: 56 Year
  Sex: Female
  Weight: 64 kg

DRUGS (6)
  1. VIOXX [Suspect]
     Indication: OSTEOARTHRITIS
     Route: 048
     Dates: start: 20000801, end: 20041101
  2. PREMARIN [Concomitant]
     Route: 065
  3. PROMETRIUM [Concomitant]
     Route: 065
  4. ALLEGRA [Concomitant]
     Route: 065
  5. TRAZODONE HYDROCHLORIDE [Concomitant]
     Route: 065
  6. FLONASE [Concomitant]
     Route: 065

REACTIONS (19)
  - ANGER [None]
  - BACK PAIN [None]
  - BURSITIS [None]
  - DEPRESSION [None]
  - EMOTIONAL DISTRESS [None]
  - GASTROOESOPHAGEAL REFLUX DISEASE [None]
  - HEADACHE [None]
  - HYPERSENSITIVITY [None]
  - INTRACRANIAL VENOUS SINUS THROMBOSIS [None]
  - MAJOR DEPRESSION [None]
  - OVERDOSE [None]
  - PAIN IN EXTREMITY [None]
  - PARAESTHESIA [None]
  - PHOTOPHOBIA [None]
  - SCINTILLATING SCOTOMA [None]
  - SUICIDAL IDEATION [None]
  - TRANSIENT ISCHAEMIC ATTACK [None]
  - UROGENITAL DISORDER [None]
  - UTERINE DISORDER [None]
